FAERS Safety Report 13574088 (Version 3)
Quarter: 2017Q2

REPORT INFORMATION
  Report Type: Spontaneous
  Country: US (occurrence: US)
  Receive Date: 20170523
  Receipt Date: 20170608
  Transmission Date: 20170830
  Serious: Yes (Death, Hospitalization)
  Sender: FDA-Public Use
  Company Number: US-BAUSCH-BL-2017-017030

PATIENT
  Age: 69 Year
  Sex: Male
  Weight: 81.72 kg

DRUGS (9)
  1. XIFAXAN [Suspect]
     Active Substance: RIFAXIMIN
     Indication: HEPATIC FIBROSIS
     Route: 048
     Dates: start: 201609
  2. XIFAXAN [Suspect]
     Active Substance: RIFAXIMIN
     Indication: NON-ALCOHOLIC STEATOHEPATITIS
  3. XIFAXAN [Suspect]
     Active Substance: RIFAXIMIN
     Indication: HEPATIC CIRRHOSIS
  4. LACTULOSE. [Concomitant]
     Active Substance: LACTULOSE
     Indication: ASCITES
  5. SPIRONOLACTONE. [Concomitant]
     Active Substance: SPIRONOLACTONE
     Indication: ASCITES
  6. LASIX [Concomitant]
     Active Substance: FUROSEMIDE
     Indication: ASCITES
  7. HUMULIN NOS [Concomitant]
     Active Substance: INSULIN HUMAN
     Indication: DIABETES MELLITUS
  8. GABAPENTIN. [Concomitant]
     Active Substance: GABAPENTIN
     Indication: DIABETIC NEUROPATHY
  9. GLIPIZIDE. [Concomitant]
     Active Substance: GLIPIZIDE
     Indication: DIABETES MELLITUS

REACTIONS (4)
  - Death [Fatal]
  - Haemorrhoidal haemorrhage [Unknown]
  - Hepatic encephalopathy [Unknown]
  - Hypotension [Unknown]

NARRATIVE: CASE EVENT DATE: 20170113
